FAERS Safety Report 22624689 (Version 2)
Quarter: 2023Q2

REPORT INFORMATION
  Report Type: Report from Study
  Country: KR (occurrence: KR)
  Receive Date: 20230621
  Receipt Date: 20230623
  Transmission Date: 20230721
  Serious: Yes (Death, Hospitalization, Other)
  Sender: FDA-Public Use
  Company Number: KR-ONO-2023KR015600

PATIENT
  Age: 64 Year
  Sex: Female
  Weight: 58.1 kg

DRUGS (14)
  1. BRAFTOVI [Suspect]
     Active Substance: ENCORAFENIB
     Indication: Colon cancer
     Dosage: 300 MG, EVERYDAY
     Route: 048
     Dates: start: 20220822, end: 20221229
  2. CETUXIMAB [Concomitant]
     Active Substance: CETUXIMAB
     Indication: Colon cancer
     Dosage: 632 MG, QW
     Route: 042
     Dates: start: 20220822, end: 20220822
  3. CETUXIMAB [Concomitant]
     Active Substance: CETUXIMAB
     Dosage: 397.5 MG, QW
     Route: 042
     Dates: start: 20220830, end: 20220914
  4. CETUXIMAB [Concomitant]
     Active Substance: CETUXIMAB
     Dosage: 377.5 MG, QW
     Route: 042
     Dates: start: 20220921, end: 20221005
  5. CETUXIMAB [Concomitant]
     Active Substance: CETUXIMAB
     Dosage: 380 MG, QW
     Route: 042
     Dates: start: 20221012, end: 20221019
  6. CETUXIMAB [Concomitant]
     Active Substance: CETUXIMAB
     Dosage: 375 MG, QW
     Route: 042
     Dates: start: 20221026, end: 20221109
  7. CETUXIMAB [Concomitant]
     Active Substance: CETUXIMAB
     Dosage: 378 MG, QW
     Route: 042
     Dates: start: 20221116, end: 20221130
  8. CETUXIMAB [Concomitant]
     Active Substance: CETUXIMAB
     Dosage: 375 MG, QW
     Route: 042
     Dates: start: 20221208, end: 20221222
  9. LYRICA [Concomitant]
     Active Substance: PREGABALIN
     Indication: Prophylaxis
     Dosage: 150 MG, EVERYDAY
     Route: 048
     Dates: start: 20220822, end: 20220827
  10. LAMINA-G [Concomitant]
     Dosage: UNK
  11. NORZYME [Concomitant]
     Dosage: UNK
  12. URSODIOL [Concomitant]
     Active Substance: URSODIOL
     Dosage: UNK
  13. GODEX [ADENINE HYDROCHLORIDE;CARNITINE OROTATE;CYANOCOBALAMIN;LIVER EX [Concomitant]
     Dosage: UNK
  14. MYPOL [CODEINE PHOSPHATE;IBUPROFEN;PARACETAMOL] [Concomitant]
     Dosage: UNK

REACTIONS (1)
  - Jaundice cholestatic [Fatal]

NARRATIVE: CASE EVENT DATE: 20230113
